FAERS Safety Report 8838328 (Version 1)
Quarter: 2012Q4

REPORT INFORMATION
  Report Type: 
  Country: MX (occurrence: MX)
  Receive Date: 20121012
  Receipt Date: 20121012
  Transmission Date: 20130627
  Serious: Yes (Death)
  Sender: FDA-Public Use
  Company Number: MX-GLAXOSMITHKLINE-A0997202A

PATIENT
  Sex: Male
  Weight: 78 kg

DRUGS (5)
  1. AVANDARYL [Suspect]
     Indication: DIABETES MELLITUS
     Dosage: 1TAB Per day
     Route: 048
     Dates: start: 2009, end: 2011
  2. NIMOTOP [Concomitant]
  3. CEFTRIAXONE [Concomitant]
  4. KETOROLACO [Concomitant]
  5. CAPTOPRIL [Concomitant]

REACTIONS (3)
  - Diabetes mellitus [Fatal]
  - Blood pressure [Fatal]
  - Angiopathy [Fatal]
